FAERS Safety Report 22263053 (Version 1)
Quarter: 2023Q2

REPORT INFORMATION
  Report Type: Spontaneous
  Country: FR (occurrence: FR)
  Receive Date: 20230428
  Receipt Date: 20230428
  Transmission Date: 20230721
  Serious: Yes (Other)
  Sender: FDA-Public Use
  Company Number: None

PATIENT
  Age: 47 Year
  Sex: Female
  Weight: 52 kg

DRUGS (1)
  1. COSENTYX [Suspect]
     Active Substance: SECUKINUMAB
     Indication: Psoriasis
     Dosage: 300 MG, QW (300 MG WEEKLY FOR 5 WEEKS AS A LOADING DOSE)
     Route: 058
     Dates: start: 20230227, end: 20230306

REACTIONS (3)
  - Dysphagia [Recovered/Resolved]
  - Abdominal pain [Recovered/Resolved]
  - Bullous haemorrhagic dermatosis [Recovered/Resolved]

NARRATIVE: CASE EVENT DATE: 20230307
